FAERS Safety Report 7556740-9 (Version None)
Quarter: 2011Q2

REPORT INFORMATION
  Report Type: 
  Country: None (occurrence: None)
  Receive Date: 20110620
  Receipt Date: 20110617
  Transmission Date: 20111010
  Serious: Yes (Disabling, Other)
  Sender: FDA-Public Use
  Company Number: NO-PFIZER INC-2011133266

PATIENT
  Age: 31 Year
  Sex: Male

DRUGS (3)
  1. ALPRAZOLAM [Suspect]
     Indication: ANXIETY
     Dosage: 0,5 MG X 4 FOR TWO WEEKS. STOPPED THE DRUG, STARTED AGAIN WITH 0,25MG X 2, AND REDUCING FROM THERE.
     Dates: start: 20100201, end: 20100301
  2. INDERAL [Concomitant]
     Indication: HEART RATE INCREASED
     Dosage: 40 MG, 2X/DAY
     Dates: start: 20100401
  3. FLUOXETINE HCL [Concomitant]
     Indication: ANXIETY
     Dosage: 20 MG, 1X/DAY
     Dates: start: 20100201, end: 20100601

REACTIONS (6)
  - DYSPNOEA [None]
  - WITHDRAWAL SYNDROME [None]
  - CONSTIPATION [None]
  - ANXIETY [None]
  - ASTHENIA [None]
  - INSOMNIA [None]
